FAERS Safety Report 10413705 (Version 3)
Quarter: 2015Q2

REPORT INFORMATION
  Report Type: Spontaneous
  Country: US (occurrence: US)
  Receive Date: 20140827
  Receipt Date: 20150512
  Transmission Date: 20150821
  Serious: Yes (Hospitalization)
  Sender: FDA-Public Use
  Company Number: PHHY2014US105909

PATIENT
  Age: 8 Year
  Sex: Female

DRUGS (3)
  1. DEFEROXAMINE [Suspect]
     Active Substance: DEFEROXAMINE\DEFEROXAMINE MESYLATE
     Indication: THALASSAEMIA BETA
     Dosage: 3 G
     Route: 040
  2. METHYLPREDNISOLONE. [Suspect]
     Active Substance: METHYLPREDNISOLONE
  3. DIPHENHYDRAMINE [Suspect]
     Active Substance: DIPHENHYDRAMINE

REACTIONS (7)
  - Overdose [Unknown]
  - Drug administration error [Unknown]
  - Face oedema [Recovering/Resolving]
  - Hypotension [Recovering/Resolving]
  - Tachycardia [Recovering/Resolving]
  - Drug ineffective [Unknown]
  - Depressed level of consciousness [Recovering/Resolving]
